FAERS Safety Report 5990546-7 (Version None)
Quarter: 2008Q4

REPORT INFORMATION
  Report Type: 
  Country: None (occurrence: None)
  Receive Date: 20081211
  Receipt Date: 20081103
  Transmission Date: 20090506
  Serious: Yes (Death)
  Sender: FDA-Public Use
  Company Number: PE-PFIZER INC-2008092208

PATIENT

DRUGS (4)
  1. LYRICA [Suspect]
     Indication: NEURALGIA
     Dates: start: 20061117
  2. TRAMADOL [Concomitant]
  3. MORPHINE [Concomitant]
  4. ALPRAZOLAM [Concomitant]

REACTIONS (1)
  - LUNG NEOPLASM MALIGNANT [None]
